FAERS Safety Report 5520995-2 (Version None)
Quarter: 2007Q4

REPORT INFORMATION
  Report Type: 
  Country: None (occurrence: None)
  Receive Date: 20071119
  Receipt Date: 20071105
  Transmission Date: 20080405
  Serious: Yes (Hospitalization)
  Sender: FDA-Public Use
  Company Number: FR-ROCHE-529565

PATIENT
  Age: 70 Year
  Sex: Female

DRUGS (1)
  1. CAPECITABINE [Suspect]
     Indication: RECTAL CANCER
     Dosage: CUMULATIVE DOSE REPORTED AS 63700 MG.
     Route: 048
     Dates: start: 20070503

REACTIONS (1)
  - FAILURE TO ANASTOMOSE [None]
